FAERS Safety Report 14017896 (Version 1)
Quarter: 2017Q3

REPORT INFORMATION
  Report Type: Report from Study
  Country: CZ (occurrence: CZ)
  Receive Date: 20170928
  Receipt Date: 20170928
  Transmission Date: 20171128
  Serious: Yes (Hospitalization, Disabling)
  Sender: FDA-Public Use
  Company Number: CZ-ROCHE-1639818

PATIENT
  Age: 36 Year
  Sex: Male
  Weight: 108 kg

DRUGS (37)
  1. AVAMYS [Concomitant]
     Active Substance: FLUTICASONE FUROATE
     Indication: HYPOACUSIS
     Dosage: 120 X 27.5 RG
     Route: 045
     Dates: start: 20120721, end: 20120901
  2. FAMPYRA [Concomitant]
     Active Substance: DALFAMPRIDINE
     Route: 065
     Dates: start: 20140828
  3. OCRELIZUMAB. [Suspect]
     Active Substance: OCRELIZUMAB
     Dosage: START TIME: 08:35 AND STOP TIME: 11:30
     Route: 042
     Dates: start: 20150425, end: 20150425
  4. OCRELIZUMAB. [Suspect]
     Active Substance: OCRELIZUMAB
     Dosage: START TIME: 09:45 AND STOP TIME: 12:30.
     Route: 042
     Dates: start: 20130822, end: 20130822
  5. OCRELIZUMAB. [Suspect]
     Active Substance: OCRELIZUMAB
     Dosage: START TIME: 09:45 AND STOP TIME: 12:25.
     Route: 042
     Dates: start: 20140206, end: 20140206
  6. OCRELIZUMAB. [Suspect]
     Active Substance: OCRELIZUMAB
     Dosage: START DATE: 09:00 AND STOP DATE: 11:45.
     Route: 042
     Dates: start: 20140220, end: 20140220
  7. OCRELIZUMAB. [Suspect]
     Active Substance: OCRELIZUMAB
     Dosage: START TIME: 09:30 AND STOP TIME: 12:10.
     Route: 042
     Dates: start: 20150122, end: 20150122
  8. ACIDUM ASCORBICUM [Concomitant]
     Indication: PROPHYLAXIS
     Route: 065
     Dates: start: 20150108, end: 20150108
  9. AMOXICILLIN TRIHYDRATE [Concomitant]
     Active Substance: AMOXICILLIN
     Indication: UPPER RESPIRATORY TRACT INFECTION
     Route: 065
     Dates: start: 20120417, end: 20120423
  10. HELICID [Concomitant]
     Active Substance: OMEPRAZOLE
     Indication: GASTRITIS PROPHYLAXIS
     Route: 065
     Dates: start: 20120111
  11. ENDIARON [Concomitant]
     Indication: GASTROENTERITIS
     Route: 065
     Dates: start: 20150610, end: 20150614
  12. XORIMAX [Concomitant]
     Active Substance: CEFUROXIME AXETIL
     Indication: RESPIRATORY TRACT INFECTION
     Route: 065
     Dates: start: 20160107, end: 20160112
  13. OCRELIZUMAB. [Suspect]
     Active Substance: OCRELIZUMAB
     Dosage: START TIME: 11:15 AND STOP TIME: 13:50.
     Route: 042
     Dates: start: 20140724, end: 20140724
  14. OCRELIZUMAB. [Suspect]
     Active Substance: OCRELIZUMAB
     Dosage: START TIME: 09:45 AND STOP TIME: 12:25.
     Route: 042
     Dates: start: 20130307, end: 20130307
  15. OCRELIZUMAB. [Suspect]
     Active Substance: OCRELIZUMAB
     Dosage: START TIME: 08:45 AND STOP TIME: 11:32.
     Route: 042
     Dates: start: 20130905, end: 20130905
  16. OCRELIZUMAB. [Suspect]
     Active Substance: OCRELIZUMAB
     Dosage: START TIME: 10:00 AND STOP TIME: 12:40.
     Route: 042
     Dates: start: 20150625, end: 20150625
  17. AMOXICILLIN TRIHYDRATE [Concomitant]
     Active Substance: AMOXICILLIN
     Indication: RESPIRATORY TRACT INFECTION
     Route: 065
     Dates: start: 20170130, end: 20170206
  18. FAMPYRA [Concomitant]
     Active Substance: DALFAMPRIDINE
     Indication: PARAPARESIS
     Dosage: RESPONSIVITY TESTING
     Route: 065
     Dates: start: 20140820, end: 20140820
  19. IBALGIN [Concomitant]
     Active Substance: IBUPROFEN
     Indication: SPINAL PAIN
     Route: 065
     Dates: start: 2007
  20. MEDROL [Concomitant]
     Active Substance: METHYLPREDNISOLONE
     Indication: MULTIPLE SCLEROSIS
     Route: 065
     Dates: start: 20120203, end: 20120301
  21. OCRELIZUMAB. [Suspect]
     Active Substance: OCRELIZUMAB
     Indication: PRIMARY PROGRESSIVE MULTIPLE SCLEROSIS
     Dosage: ON DAYS 1 AND 15 OF EVERY 24 WEEK TREATMENT CYCLE ?START TIME: 10:30 AND STOP TIME:13:15
     Route: 042
     Dates: start: 20120405, end: 20120405
  22. PARALEN (CZECH REPUBLIC) [Concomitant]
     Indication: PREMEDICATION
     Dosage: SUBSEQUENT DOSES RECEIVED ON 20/SEP/2012, 18/OCT/2012, 07/MAR/2013, 21/MAR/2013, 22/AUG/2013, 05/SEP
     Route: 065
     Dates: start: 20120405, end: 20120405
  23. OCRELIZUMAB. [Suspect]
     Active Substance: OCRELIZUMAB
     Dosage: START DATE: 11:00 AND STOP DATE: 13:50.
     Route: 042
     Dates: start: 20120920, end: 20120920
  24. OCRELIZUMAB. [Suspect]
     Active Substance: OCRELIZUMAB
     Dosage: START TIME: 09:00 AND STOP TIME: 11:42.
     Route: 042
     Dates: start: 20121018, end: 20121018
  25. OCRELIZUMAB. [Suspect]
     Active Substance: OCRELIZUMAB
     Dosage: START TIME: 09:30 AND STOP TIME: 12:00.
     Route: 042
     Dates: start: 20140807, end: 20140807
  26. ZODAC [Concomitant]
     Active Substance: CETIRIZINE HYDROCHLORIDE
     Indication: PREMEDICATION
     Dosage: SUBSEQUENT DOSES RECEIVED ON 20/SEP/2012, 18/OCT/2012, 07/MAR/2013, 21/MAR/2013, 22/AUG/2013, 05/SEP
     Route: 065
     Dates: start: 20120405, end: 20120405
  27. MEDROL [Concomitant]
     Active Substance: METHYLPREDNISOLONE
     Route: 065
     Dates: start: 20120118, end: 20120202
  28. OCRELIZUMAB. [Suspect]
     Active Substance: OCRELIZUMAB
     Dosage: START TIME: 08:45 AND STOP TIME: 11:45.
     Route: 042
     Dates: start: 20130321, end: 20130321
  29. OCRELIZUMAB. [Suspect]
     Active Substance: OCRELIZUMAB
     Dosage: START TIME: 09:15 AND STOP TIME: 12:00.
     Route: 042
     Dates: start: 20150709, end: 20150709
  30. SOLU-MEDROL [Concomitant]
     Active Substance: METHYLPREDNISOLONE SODIUM SUCCINATE
     Indication: MULTIPLE SCLEROSIS
     Route: 065
     Dates: start: 20120111, end: 20120117
  31. OCRELIZUMAB. [Suspect]
     Active Substance: OCRELIZUMAB
     Dosage: START TIME: 10:00 AND STOP TIME: 12:45.
     Route: 042
     Dates: start: 20150108, end: 20150108
  32. METHYLPREDNISOLONE. [Concomitant]
     Active Substance: METHYLPREDNISOLONE
     Indication: PREMEDICATION
     Dosage: OTHER DOSES WITH STUDY MEDICATION: 20/SEP/2012, 18/OCT/2012, 07/MAR/2013, 21/MAR/2013, 22/AUG/2013,
     Route: 065
     Dates: start: 20120405, end: 20120405
  33. BETAHISTIN [Concomitant]
     Indication: HYPOACUSIS
     Route: 065
     Dates: start: 20120721, end: 20120810
  34. COLDREX MAXGRIP [Concomitant]
     Indication: VIRAL INFECTION
     Dosage: 1 UNIT
     Route: 065
     Dates: start: 20120611, end: 20120614
  35. SOLU-MEDROL [Concomitant]
     Active Substance: METHYLPREDNISOLONE SODIUM SUCCINATE
     Route: 065
     Dates: start: 20160825, end: 20160825
  36. VIGANTOL [Concomitant]
     Active Substance: CHOLECALCIFEROL
     Dosage: INDICATION: VITAMIN D SUPPLEMENTATION
     Route: 065
     Dates: start: 20120202
  37. NORMAL SALINE [Concomitant]
     Active Substance: SODIUM CHLORIDE
     Route: 065
     Dates: start: 20150108, end: 20150108

REACTIONS (2)
  - Gastroenteritis [Recovered/Resolved]
  - Paraparesis [Recovered/Resolved]

NARRATIVE: CASE EVENT DATE: 20150906
